FAERS Safety Report 23140852 (Version 1)
Quarter: 2023Q4

REPORT INFORMATION
  Report Type: Spontaneous
  Country: ES (occurrence: ES)
  Receive Date: 20231103
  Receipt Date: 20231103
  Transmission Date: 20240109
  Serious: No
  Sender: FDA-Public Use
  Company Number: ES-SCALL-2023-EME-129790

PATIENT
  Sex: Male

DRUGS (2)
  1. DUTASTERIDE [Suspect]
     Active Substance: DUTASTERIDE
     Indication: Alopecia
     Route: 065
     Dates: end: 20230422
  2. LORINDEN [Concomitant]
     Dates: end: 20230422

REACTIONS (1)
  - Product use in unapproved indication [Unknown]
